FAERS Safety Report 10474404 (Version 1)
Quarter: 2014Q3

REPORT INFORMATION
  Report Type: Spontaneous
  Country: US (occurrence: US)
  Receive Date: 20140924
  Receipt Date: 20140924
  Transmission Date: 20150326
  Serious: Yes (Congenital Anomaly)
  Sender: FDA-Public Use
  Company Number: US-FRI-1000070813

PATIENT
  Age: 0 Day
  Sex: Male

DRUGS (1)
  1. LEXAPRO [Suspect]
     Active Substance: ESCITALOPRAM OXALATE
     Dates: end: 20120829

REACTIONS (5)
  - Univentricular heart [Unknown]
  - Pulmonary artery atresia [Unknown]
  - Heart injury [Unknown]
  - Congenital tricuspid valve atresia [Unknown]
  - Dextrocardia [Unknown]

NARRATIVE: CASE EVENT DATE: 20120829
